FAERS Safety Report 6357537-8 (Version None)
Quarter: 2009Q3

REPORT INFORMATION
  Report Type: 
  Country: None (occurrence: None)
  Receive Date: 20090916
  Receipt Date: 20090908
  Transmission Date: 20100115
  Serious: Yes (Hospitalization)
  Sender: FDA-Public Use
  Company Number: JP-ELI_LILLY_AND_COMPANY-JP200908006425

PATIENT
  Sex: Male
  Weight: 50.4 kg

DRUGS (11)
  1. ALIMTA [Suspect]
     Indication: NON-SMALL CELL LUNG CANCER STAGE IIIB
     Dosage: 750 MG, 3/W
     Route: 042
     Dates: start: 20090723, end: 20090723
  2. ALIMTA [Suspect]
     Dosage: 600 MG, 3/W
     Route: 042
     Dates: start: 20090813, end: 20090813
  3. PANVITAN [Concomitant]
     Dosage: 1 G, DAILY (1/D)
     Route: 048
     Dates: start: 20080801
  4. VITAMIN B-12 [Concomitant]
     Dosage: UNK, UNKNOWN
     Route: 065
  5. LAC B [Concomitant]
     Dosage: 3 G, DAILY (1/D)
     Route: 048
     Dates: start: 20080801
  6. HALCION [Concomitant]
     Dosage: 0.25 MG, DAILY (1/D)
     Route: 048
     Dates: start: 20080801
  7. MUCODYNE [Concomitant]
     Dosage: 500 MG, DAILY (1/D)
     Route: 048
     Dates: start: 20080801
  8. MUCOSOLVAN [Concomitant]
     Dosage: 15 MG, DAILY (1/D)
     Route: 048
     Dates: start: 20080801
  9. MUCOSTA [Concomitant]
     Indication: RENAL INFARCT
     Dosage: 100 MG, AS NEEDED
     Route: 048
     Dates: start: 20090716
  10. LOBU [Concomitant]
     Indication: RENAL INFARCT
     Dosage: 60 MG, AS NEEDED
     Route: 048
     Dates: start: 20080801
  11. PURSENNID [Concomitant]
     Dosage: 12 MG, 2/D
     Route: 048
     Dates: start: 20080801

REACTIONS (2)
  - LARYNGEAL OEDEMA [None]
  - RASH [None]
